FAERS Safety Report 5993042-6 (Version None)
Quarter: 2008Q4

REPORT INFORMATION
  Report Type: 
  Country: None (occurrence: None)
  Receive Date: 20081212
  Receipt Date: 20081208
  Transmission Date: 20090506
  Serious: Yes (Other)
  Sender: FDA-Public Use
  Company Number: TR-BRISTOL-MYERS SQUIBB COMPANY-14434880

PATIENT
  Age: 42 Year
  Sex: Male

DRUGS (1)
  1. TRIAMCINOLONE ACETONIDE [Suspect]
     Indication: MACULAR OEDEMA
     Dosage: ROUTE-INTRAVITREAL, 1 DOSAGE FORM= 4MG/0.1 ML

REACTIONS (1)
  - CHORIORETINOPATHY [None]
